FAERS Safety Report 7471447-4 (Version None)
Quarter: 2011Q2

REPORT INFORMATION
  Report Type: 
  Country: None (occurrence: None)
  Receive Date: 20110511
  Receipt Date: 20110503
  Transmission Date: 20111010
  Serious: Yes (Death)
  Sender: FDA-Public Use
  Company Number: 2007BI009756

PATIENT
  Age: 58 Year
  Sex: Female

DRUGS (6)
  1. TYSABRI [Suspect]
     Indication: MULTIPLE SCLEROSIS
     Route: 042
     Dates: start: 20061011, end: 20070216
  2. GABAPENTIN [Concomitant]
  3. KEPPRA [Concomitant]
  4. FENTANYL [Concomitant]
  5. BACLOFEN [Concomitant]
  6. KEFLEX [Concomitant]

REACTIONS (3)
  - RESPIRATORY FAILURE [None]
  - MULTIPLE SCLEROSIS [None]
  - PNEUMONIA [None]
